FAERS Safety Report 4447841-2 (Version None)
Quarter: 2004Q3

REPORT INFORMATION
  Report Type: 
  Country: None (occurrence: None)
  Receive Date: 20040812
  Receipt Date: 20040527
  Transmission Date: 20050211
  Serious: No
  Sender: FDA-Public Use
  Company Number: USA040568748

PATIENT
  Age: 69 Year
  Sex: Male
  Weight: 82 kg

DRUGS (4)
  1. CIALIS [Suspect]
     Indication: ERECTILE DYSFUNCTION
     Dates: start: 20040501, end: 20040501
  2. AVODART [Concomitant]
  3. LIPITOR [Concomitant]
  4. METOPROLOL [Concomitant]

REACTIONS (2)
  - MYALGIA [None]
  - STOMACH DISCOMFORT [None]
